FAERS Safety Report 25663976 (Version 2)
Quarter: 2025Q3

REPORT INFORMATION
  Report Type: Spontaneous
  Country: EU (occurrence: None)
  Receive Date: 20250811
  Receipt Date: 20250825
  Transmission Date: 20251021
  Serious: Yes (Death, Hospitalization)
  Sender: ENCUBE ETHICALS PVT. LTD.
  Company Number: EU-Encube-002117

PATIENT
  Sex: Female

DRUGS (2)
  1. BETAMETHASONE DIPROPIONATE [Suspect]
     Active Substance: BETAMETHASONE DIPROPIONATE
     Indication: Pruritus
     Dosage: 20 TUBES PER MONTH (I.E. 600 GRAM PER MONTH OR 7.2 KG PER YEAR)
  2. METHOTREXATE [Suspect]
     Active Substance: METHOTREXATE
     Indication: Arthritis

REACTIONS (10)
  - Cushing^s syndrome [Fatal]
  - Skin atrophy [Unknown]
  - Adrenal insufficiency [Fatal]
  - Multiple organ dysfunction syndrome [Fatal]
  - Intentional product misuse [Unknown]
  - Product use issue [Unknown]
  - Osteoporosis [Fatal]
  - Fibula fracture [Unknown]
  - Septic shock [Fatal]
  - Drug abuse [Fatal]
